FAERS Safety Report 20790786 (Version 2)
Quarter: 2022Q2

REPORT INFORMATION
  Report Type: Report from Study
  Country: CA (occurrence: CA)
  Receive Date: 20220505
  Receipt Date: 20220516
  Transmission Date: 20220721
  Serious: Yes (Hospitalization, Other)
  Sender: FDA-Public Use
  Company Number: CA-HLS-202200729

PATIENT
  Age: 80 Year
  Sex: Female

DRUGS (34)
  1. CLOZARIL [Suspect]
     Active Substance: CLOZAPINE
     Indication: Dementia
     Route: 065
  2. CLOZARIL [Suspect]
     Active Substance: CLOZAPINE
     Indication: Dementia
     Dosage: 1/2 TABLET (12.5MG) AT NIGHT, 1/4 TABLET AT NIGHT
     Route: 048
     Dates: start: 20220411, end: 20220411
  3. CLOZARIL [Suspect]
     Active Substance: CLOZAPINE
     Indication: Dementia
     Dosage: 25 MG AT BEDTIME AND 100 MF AT BEDTIME AND 3 TABLETS (75MG)
     Route: 048
     Dates: start: 20220411
  4. CLOZARIL [Suspect]
     Active Substance: CLOZAPINE
     Indication: Dementia
     Dosage: 2 TABLETS (50MG) AT NIGHT
     Route: 048
     Dates: start: 20220412
  5. Haldol LA [Concomitant]
     Indication: Product used for unknown indication
     Route: 065
     Dates: start: 20220128, end: 20220404
  6. ARIPIPRAZOLE [Concomitant]
     Active Substance: ARIPIPRAZOLE
     Indication: Product used for unknown indication
     Route: 065
  7. Actaminophen [Concomitant]
     Indication: Product used for unknown indication
     Route: 065
     Dates: start: 20210416, end: 20220405
  8. Actaminophen [Concomitant]
     Indication: Product used for unknown indication
     Dosage: 325 MG ; 2 TABLETS BY MOUTH (650MG ) THREE TIMES A DAY
     Route: 048
     Dates: start: 20220405
  9. VITAMIN D3 [Concomitant]
     Active Substance: CHOLECALCIFEROL
     Indication: Product used for unknown indication
     Dosage: 1000 UNITS
     Route: 048
  10. SENNOSIDES [Concomitant]
     Active Substance: SENNOSIDES
     Indication: Product used for unknown indication
     Dosage: 2 TABELETS ONCE A DAY
     Route: 048
     Dates: start: 20220405
  11. SENNOSIDES [Concomitant]
     Active Substance: SENNOSIDES
     Indication: Product used for unknown indication
     Dosage: 2 TABLETS
     Route: 065
     Dates: start: 20220228, end: 20220405
  12. PROLIA [Concomitant]
     Active Substance: DENOSUMAB
     Indication: Product used for unknown indication
     Route: 058
     Dates: start: 20211101, end: 20220405
  13. HYDROMORPHONE [Concomitant]
     Active Substance: HYDROMORPHONE
     Indication: Product used for unknown indication
     Route: 065
     Dates: start: 20210801, end: 20220405
  14. HYDROMORPHONE [Concomitant]
     Active Substance: HYDROMORPHONE
     Indication: Product used for unknown indication
     Dosage: FOUR TIMES DAILY
     Route: 048
     Dates: start: 20220405
  15. CALCIUM [Concomitant]
     Active Substance: CALCIUM
     Indication: Product used for unknown indication
     Dosage: 1 TABLET ONCE DAILY
     Route: 048
     Dates: start: 20211101, end: 20220405
  16. CALCIUM [Concomitant]
     Active Substance: CALCIUM
     Indication: Product used for unknown indication
     Dosage: 1 TABLET TWICE DAILY
     Route: 048
     Dates: start: 20220405
  17. BENZTROPINE [Concomitant]
     Active Substance: BENZTROPINE
     Indication: Product used for unknown indication
     Dosage: 1 TABLET TWICE DAILY
     Route: 048
     Dates: start: 20220406, end: 20220428
  18. BENZTROPINE [Concomitant]
     Active Substance: BENZTROPINE
     Indication: Product used for unknown indication
     Route: 048
     Dates: start: 20211101, end: 20220406
  19. ARIPIPRAZOLE [Concomitant]
     Active Substance: ARIPIPRAZOLE
     Indication: Product used for unknown indication
     Dosage: 1 TABLET ONCE DAILY FOR 2 DAYS AND THEN 6 DAYS OFF , 2 TABLET ONCE DAILY UNTIL 20-APR-2022, THE 3 TA
     Route: 048
     Dates: start: 20220414
  20. ARIPIPRAZOLE [Concomitant]
     Active Substance: ARIPIPRAZOLE
     Indication: Product used for unknown indication
     Route: 048
     Dates: start: 20220405, end: 20220414
  21. ARIPIPRAZOLE [Concomitant]
     Active Substance: ARIPIPRAZOLE
     Indication: Product used for unknown indication
     Route: 048
     Dates: start: 20220405, end: 20220414
  22. ARIPIPRAZOLE [Concomitant]
     Active Substance: ARIPIPRAZOLE
     Indication: Product used for unknown indication
     Dosage: 2 TABLETS ,3 TABLETS , 4 TABLETS AND GIVE 1 TABLET DAILY
     Route: 048
     Dates: start: 20220405, end: 20220414
  23. AMLODIPINE [Concomitant]
     Active Substance: AMLODIPINE BESYLATE
     Indication: Product used for unknown indication
     Route: 048
     Dates: start: 20220405
  24. LACTULOSE [Concomitant]
     Active Substance: LACTULOSE
     Indication: Product used for unknown indication
     Route: 065
     Dates: start: 20220117, end: 20220405
  25. LACTULOSE [Concomitant]
     Active Substance: LACTULOSE
     Indication: Product used for unknown indication
     Dosage: 667 MG /ML
     Route: 065
     Dates: start: 20220405
  26. 2.0 Supplement [Concomitant]
     Indication: Product used for unknown indication
     Route: 065
     Dates: start: 20210519
  27. ABILIFY [Concomitant]
     Active Substance: ARIPIPRAZOLE
     Indication: Product used for unknown indication
     Route: 048
     Dates: start: 20220404, end: 20220405
  28. MAALOX ANTACID [Concomitant]
     Active Substance: ALUMINUM HYDROXIDE\DIMETHICONE\MAGNESIUM HYDROXIDE
     Indication: Product used for unknown indication
     Dosage: 3 TIMES DAILY IF REQUIRED , IF ALMAGEL NOT AVAILABLE
     Route: 065
  29. HALOPERIDOL [Concomitant]
     Active Substance: HALOPERIDOL
     Indication: Product used for unknown indication
     Dosage: 1/2 TABLET (0.25 MG) TWICE DAILY
     Route: 048
     Dates: end: 20220404
  30. FLEET ENEMA [Concomitant]
     Active Substance: SODIUM PHOSPHATE, DIBASIC\SODIUM PHOSPHATE, MONOBASIC
     Indication: Product used for unknown indication
     Route: 065
     Dates: end: 20220405
  31. DULCOLAX (BISACODYL) [Concomitant]
     Active Substance: BISACODYL
     Indication: Product used for unknown indication
     Dosage: 1 SUPP RECTALLY EVERY 24 HOURS
     Route: 054
     Dates: end: 20220405
  32. Alma gel [Concomitant]
     Indication: Product used for unknown indication
     Route: 065
  33. ACETAMINOPHEN [Concomitant]
     Active Substance: ACETAMINOPHEN
     Indication: Product used for unknown indication
     Dosage: 1 SUPP RECTALLY EVERY 4 HOURS IF REQUIRED.
     Route: 065
     Dates: start: 20211101, end: 20220405
  34. ACETAMINOPHEN [Concomitant]
     Active Substance: ACETAMINOPHEN
     Indication: Product used for unknown indication
     Dosage: INSERT 1 SUPP EVERY 4 HOURS IF REQUIRED (MAX 4 DOSES )
     Route: 054
     Dates: start: 20220405

REACTIONS (6)
  - Neutrophil count increased [Recovered/Resolved]
  - C-reactive protein increased [Unknown]
  - Medication error [Unknown]
  - Monocyte count increased [Unknown]
  - Myocarditis [Unknown]
  - White blood cell count increased [Recovered/Resolved]

NARRATIVE: CASE EVENT DATE: 20220418
